FAERS Safety Report 9402311 (Version 2)
Quarter: 2013Q3

REPORT INFORMATION
  Report Type: Spontaneous
  Country: JP (occurrence: JP)
  Receive Date: 20130716
  Receipt Date: 20130731
  Transmission Date: 20140515
  Serious: No
  Sender: FDA-Public Use
  Company Number: JP-PFIZER INC-2013205188

PATIENT
  Age: 93 Year
  Sex: Male
  Weight: 50 kg

DRUGS (1)
  1. ZOSYN [Suspect]
     Indication: URINARY TRACT INFECTION
     Dosage: 4.5 G, DAILY
     Route: 041
     Dates: start: 20130705, end: 20130705

REACTIONS (2)
  - Tongue oedema [Recovered/Resolved]
  - Erythema [Recovered/Resolved]
